FAERS Safety Report 8000127-1 (Version None)
Quarter: 2011Q4

REPORT INFORMATION
  Report Type: 
  Country: None (occurrence: None)
  Receive Date: 20111220
  Receipt Date: 20111220
  Transmission Date: 20120403
  Serious: Yes (Other)
  Sender: FDA-Public Use
  Company Number: None

PATIENT
  Sex: Female
  Weight: 54.8852 kg

DRUGS (4)
  1. TRAMADOL HCL [Suspect]
     Indication: PAIN
     Dosage: 50 MG (T)
  2. CYCLOBENZAPRINE [Suspect]
     Indication: MUSCLE RELAXANT THERAPY
     Dosage: 5 MG (C) ONCE
     Dates: start: 20111103, end: 20111104
  3. PAROXETINE HCL [Suspect]
     Indication: NERVOUSNESS
     Dosage: 20 M (P) DAILY
  4. BUSIPRONE [Suspect]
     Indication: ANXIETY
     Dosage: 15 MG (B) DAILY

REACTIONS (5)
  - NERVOUSNESS [None]
  - VISION BLURRED [None]
  - WEIGHT DECREASED [None]
  - ANXIETY [None]
  - DECREASED APPETITE [None]
